FAERS Safety Report 12176347 (Version 2)
Quarter: 2016Q3

REPORT INFORMATION
  Report Type: Spontaneous
  Country: US (occurrence: US)
  Receive Date: 20160314
  Receipt Date: 20160722
  Transmission Date: 20161109
  Serious: Yes (Hospitalization)
  Sender: FDA-Public Use
  Company Number: US-BAYER-2016-048088

PATIENT
  Age: 26 Year
  Sex: Female
  Weight: 81.63 kg

DRUGS (13)
  1. MIRENA [Suspect]
     Active Substance: LEVONORGESTREL
     Indication: CONTRACEPTION
     Dosage: 20 MCG/24HR, CONT
     Route: 015
     Dates: start: 20130227, end: 20150824
  2. IMITREX [Concomitant]
     Active Substance: SUMATRIPTAN SUCCINATE
     Indication: MIGRAINE
     Dosage: UNK
     Dates: start: 1999
  3. NAPROSYN [Concomitant]
     Active Substance: NAPROXEN
  4. COLACE [Concomitant]
     Active Substance: DOCUSATE SODIUM
  5. CYCLOBENZAPRINE [Concomitant]
     Active Substance: CYCLOBENZAPRINE
  6. MAXALT [Concomitant]
     Active Substance: RIZATRIPTAN BENZOATE
     Indication: MIGRAINE
     Dosage: UNK
     Dates: start: 1999
  7. LINZESS [Concomitant]
     Active Substance: LINACLOTIDE
  8. IBUPROFEN. [Concomitant]
     Active Substance: IBUPROFEN
  9. OMEPRAZOLE. [Concomitant]
     Active Substance: OMEPRAZOLE
  10. MIRALAX [Concomitant]
     Active Substance: POLYETHYLENE GLYCOL 3350
  11. ORTHO EVRA [Concomitant]
     Active Substance: ETHINYL ESTRADIOL\NORELGESTROMIN
  12. ALEVE [Concomitant]
     Active Substance: NAPROXEN SODIUM
  13. VALIUM [Concomitant]
     Active Substance: DIAZEPAM

REACTIONS (9)
  - Uterine perforation [None]
  - Bladder prolapse [None]
  - Urinary incontinence [None]
  - Anhedonia [None]
  - Insomnia [None]
  - Rectal prolapse [None]
  - Gait disturbance [None]
  - Rectal spasm [None]
  - Constipation [None]

NARRATIVE: CASE EVENT DATE: 20130227
